FAERS Safety Report 5767153-4 (Version None)
Quarter: 2008Q2

REPORT INFORMATION
  Report Type: 
  Country: None (occurrence: None)
  Receive Date: 20080609
  Receipt Date: 20080528
  Transmission Date: 20081010
  Serious: Yes (Hospitalization)
  Sender: FDA-Public Use
  Company Number: 08P-062-0453864-00

PATIENT
  Age: 1 Year
  Sex: Female

DRUGS (5)
  1. SYNAGIS [Suspect]
     Indication: ANTIVIRAL PROPHYLAXIS
     Dosage: 85 MG; 70 MG; 75 MG; 80 MG; 85 MG
     Dates: start: 20071027, end: 20071027
  2. SYNAGIS [Suspect]
     Indication: ANTIVIRAL PROPHYLAXIS
     Dosage: 85 MG; 70 MG; 75 MG; 80 MG; 85 MG
     Dates: start: 20071128, end: 20071128
  3. SYNAGIS [Suspect]
     Indication: ANTIVIRAL PROPHYLAXIS
     Dosage: 85 MG; 70 MG; 75 MG; 80 MG; 85 MG
     Dates: start: 20080107, end: 20080107
  4. SYNAGIS [Suspect]
     Indication: ANTIVIRAL PROPHYLAXIS
     Dosage: 85 MG; 70 MG; 75 MG; 80 MG; 85 MG
     Dates: start: 20080212, end: 20080212
  5. SYNAGIS [Suspect]
     Indication: ANTIVIRAL PROPHYLAXIS
     Dosage: 85 MG; 70 MG; 75 MG; 80 MG; 85 MG
     Dates: start: 20080311, end: 20080311

REACTIONS (1)
  - BRONCHITIS CHRONIC [None]
